FAERS Safety Report 12946568 (Version 5)
Quarter: 2017Q1

REPORT INFORMATION
  Report Type: Spontaneous
  Country: US (occurrence: US)
  Receive Date: 20161116
  Receipt Date: 20170320
  Transmission Date: 20170428
  Serious: Yes (Congenital Anomaly, Other)
  Sender: FDA-Public Use
  Company Number: PHEH2016US029930

PATIENT
  Sex: Male

DRUGS (2)
  1. ZOFRAN [Suspect]
     Active Substance: ONDANSETRON HYDROCHLORIDE
     Indication: FOETAL EXPOSURE DURING PREGNANCY
     Dosage: MOTHER^S DOSE: 04 MG, UNK
     Route: 064
  2. ZOFRAN [Suspect]
     Active Substance: ONDANSETRON HYDROCHLORIDE
     Indication: FOETAL EXPOSURE DURING PREGNANCY
     Dosage: MOTHER^S DOSE: 1 DF, BID
     Route: 064

REACTIONS (7)
  - Bicuspid aortic valve [Unknown]
  - Congenital aortic valve incompetence [Unknown]
  - Congenital aortic dilatation [Unknown]
  - Foetal exposure during pregnancy [Unknown]
  - Injury [Unknown]
  - Rash [Unknown]
  - Cardiac murmur [Unknown]
